FAERS Safety Report 10566196 (Version 1)
Quarter: 2014Q4

REPORT INFORMATION
  Report Type: Spontaneous
  Country: US (occurrence: US)
  Receive Date: 20141105
  Receipt Date: 20141105
  Transmission Date: 20150529
  Serious: Yes (Other)
  Sender: FDA-Public Use
  Company Number: US-EISAI MEDICAL RESEARCH-EC-2014-001325

PATIENT
  Age: 45 Year
  Sex: Male

DRUGS (8)
  1. FYCOMPA [Suspect]
     Active Substance: PERAMPANEL
     Indication: SEIZURE
     Route: 048
     Dates: start: 201408, end: 2014
  2. LORAZEPAM. [Concomitant]
     Active Substance: LORAZEPAM
  3. TEGRETOL XR [Concomitant]
     Active Substance: CARBAMAZEPINE
     Indication: SEIZURE
     Dates: end: 2014
  4. FYCOMPA [Suspect]
     Active Substance: PERAMPANEL
     Route: 048
     Dates: start: 201409, end: 2014
  5. VIMPAT [Concomitant]
     Active Substance: LACOSAMIDE
     Indication: SEIZURE
  6. FYCOMPA [Suspect]
     Active Substance: PERAMPANEL
     Dosage: DOWN TITRATION
     Route: 048
     Dates: start: 2014, end: 2014
  7. FYCOMPA [Suspect]
     Active Substance: PERAMPANEL
     Route: 048
     Dates: start: 2014, end: 2014
  8. FYCOMPA [Suspect]
     Active Substance: PERAMPANEL
     Route: 048
     Dates: start: 2014, end: 2014

REACTIONS (3)
  - Homicidal ideation [Recovered/Resolved]
  - Aggression [Recovered/Resolved]
  - Drug withdrawal convulsions [Recovered/Resolved]

NARRATIVE: CASE EVENT DATE: 2014
